FAERS Safety Report 17826094 (Version 1)
Quarter: 2020Q2

REPORT INFORMATION
  Report Type: Spontaneous
  Country: FR (occurrence: FR)
  Receive Date: 20200526
  Receipt Date: 20200526
  Transmission Date: 20200714
  Serious: Yes (Hospitalization)
  Sender: FDA-Public Use
  Company Number: FR-PRINSTON PHARMACEUTICAL INC.-2020PRN00187

PATIENT
  Age: 89 Year
  Sex: Female

DRUGS (7)
  1. RILMENIDINE [Concomitant]
     Active Substance: RILMENIDINE
     Route: 065
  2. MORPHINE [Suspect]
     Active Substance: MORPHINE
     Indication: BACK PAIN
     Dosage: 10 MG
     Route: 065
  3. VALSARTAN/HYDROCHLOROTHIAZIDE [Concomitant]
     Active Substance: HYDROCHLOROTHIAZIDE\VALSARTAN
     Route: 065
  4. METFORMIN HYDROCHLORIDE. [Suspect]
     Active Substance: METFORMIN HYDROCHLORIDE
     Indication: TYPE 2 DIABETES MELLITUS
     Route: 065
  5. DICLOFENAC [Suspect]
     Active Substance: DICLOFENAC
     Indication: BACK PAIN
     Route: 061
  6. MELOXICAM. [Suspect]
     Active Substance: MELOXICAM
     Indication: BACK PAIN
     Route: 065
  7. PARACETAMOL/OPIUM [Concomitant]
     Active Substance: ACETAMINOPHEN\OPIUM
     Route: 065

REACTIONS (4)
  - Delirium [Unknown]
  - Respiratory failure [Unknown]
  - Lactic acidosis [Unknown]
  - Overdose [Unknown]
